FAERS Safety Report 14734481 (Version 2)
Quarter: 2018Q2

REPORT INFORMATION
  Report Type: Report from Study
  Country: JP (occurrence: JP)
  Receive Date: 20180409
  Receipt Date: 20180412
  Transmission Date: 20180711
  Serious: Yes (Hospitalization)
  Sender: FDA-Public Use
  Company Number: JP-ACTELION-A-CH2017-163624

PATIENT
  Sex: Female

DRUGS (13)
  1. EPOPROSTENOL ACT [Suspect]
     Active Substance: EPOPROSTENOL
     Dosage: 121 NG/KG, PER MIN
     Route: 042
     Dates: start: 20180117
  2. REVATIO [Concomitant]
     Active Substance: SILDENAFIL CITRATE
  3. LOPEMIN [Concomitant]
     Active Substance: LOPERAMIDE HYDROCHLORIDE
  4. OXYGEN. [Concomitant]
     Active Substance: OXYGEN
  5. EPOPROSTENOL ACT [Suspect]
     Active Substance: EPOPROSTENOL
     Indication: PULMONARY ARTERIAL HYPERTENSION
     Dosage: 121.4 NG/KG, PER MIN
     Route: 042
  6. FLUITRAN [Concomitant]
     Active Substance: TRICHLORMETHIAZIDE
  7. SPIRONOLACTONE. [Concomitant]
     Active Substance: SPIRONOLACTONE
  8. OPSUMIT [Concomitant]
     Active Substance: MACITENTAN
  9. K-SUPPLY [Concomitant]
     Active Substance: POTASSIUM CHLORIDE
  10. TRACLEER [Concomitant]
     Active Substance: BOSENTAN
  11. FUROSEMIDE. [Concomitant]
     Active Substance: FUROSEMIDE
  12. EPOPROSTENOL ACT [Suspect]
     Active Substance: EPOPROSTENOL
     Dosage: 121.4 NG/KG, PER MIN
     Route: 042
     Dates: start: 20160106
  13. EPOPROSTENOL ACT [Suspect]
     Active Substance: EPOPROSTENOL
     Dosage: 121 NG/KG, PER MIN
     Route: 042
     Dates: start: 20160802

REACTIONS (11)
  - Nasal congestion [Recovered/Resolved]
  - Skin culture positive [Recovered/Resolved]
  - Catheter management [Unknown]
  - Localised infection [Recovered/Resolved]
  - Chest pain [Recovered/Resolved]
  - Soft tissue infection [Recovered/Resolved]
  - Upper respiratory tract inflammation [Recovered/Resolved]
  - Device related infection [Recovered/Resolved]
  - Staphylococcus test positive [Recovered/Resolved]
  - Pyrexia [Recovered/Resolved]
  - Autoimmune thyroiditis [Recovering/Resolving]

NARRATIVE: CASE EVENT DATE: 20160127
